FAERS Safety Report 4982428-4 (Version None)
Quarter: 2006Q2

REPORT INFORMATION
  Report Type: 
  Country: None (occurrence: None)
  Receive Date: 20060419
  Receipt Date: 20060411
  Transmission Date: 20061013
  Serious: Yes (Disabling, Other)
  Sender: FDA-Public Use
  Company Number: 2006050903

PATIENT
  Age: 76 Year
  Sex: Female
  Weight: 83.0083 kg

DRUGS (7)
  1. LYRICA [Suspect]
     Indication: NEUROPATHY
     Dosage: 2 IN 1
     Dates: start: 20060301, end: 20060301
  2. COREG [Concomitant]
  3. ZETIA [Concomitant]
  4. PAXIL [Concomitant]
  5. VITAMIN C (VITAMIN C) [Concomitant]
  6. VITAMIN E [Concomitant]
  7. VITAMIN B (VITAMIN B) [Concomitant]

REACTIONS (5)
  - ARTHRALGIA [None]
  - DIFFICULTY IN WALKING [None]
  - DISORIENTATION [None]
  - LOSS OF CONSCIOUSNESS [None]
  - MEMORY IMPAIRMENT [None]
